FAERS Safety Report 13271982 (Version 3)
Quarter: 2017Q2

REPORT INFORMATION
  Report Type: Spontaneous
  Country: IT (occurrence: IT)
  Receive Date: 20170227
  Receipt Date: 20170504
  Transmission Date: 20170830
  Serious: Yes (Other)
  Sender: FDA-Public Use
  Company Number: IT-BEH-2017078352

PATIENT
  Age: 33 Year
  Sex: Male

DRUGS (1)
  1. PRIVIGEN [Suspect]
     Active Substance: HUMAN IMMUNOGLOBULIN G
     Indication: DEMYELINATING POLYNEUROPATHY
     Dosage: 140 G, UNK, CYCLIC, 21-42ML/HR
     Route: 042
     Dates: start: 20170210, end: 20170212

REACTIONS (8)
  - Rhabdomyolysis [Recovered/Resolved]
  - Haemolysis [Recovered/Resolved]
  - Haemolytic anaemia [Recovered/Resolved]
  - Headache [Recovered/Resolved]
  - Meningism [Recovered/Resolved]
  - Blood creatine phosphokinase increased [Recovered/Resolved]
  - Meningitis aseptic [Recovered/Resolved]
  - Nuchal rigidity [Recovered/Resolved]

NARRATIVE: CASE EVENT DATE: 20170212
